FAERS Safety Report 7327890-7 (Version None)
Quarter: 2011Q1

REPORT INFORMATION
  Report Type: 
  Country: None (occurrence: None)
  Receive Date: 20110224
  Receipt Date: 20110224
  Transmission Date: 20110831
  Serious: Yes (Other)
  Sender: FDA-Public Use
  Company Number: None

PATIENT
  Sex: Female

DRUGS (1)
  1. SUBOXONE [Suspect]
     Indication: DRUG DEPENDENCE
     Dosage: 8MG/2MG S. L.
     Route: 060

REACTIONS (4)
  - APPLICATION SITE SWELLING [None]
  - APPLICATION SITE EROSION [None]
  - APPLICATION SITE IRRITATION [None]
  - APHAGIA [None]
